FAERS Safety Report 6284934-1 (Version None)
Quarter: 2009Q3

REPORT INFORMATION
  Report Type: 
  Country: None (occurrence: None)
  Receive Date: 20090727
  Receipt Date: 20090716
  Transmission Date: 20100115
  Serious: Yes (Hospitalization)
  Sender: FDA-Public Use
  Company Number: JP-AMGEN-US357298

PATIENT
  Sex: Male
  Weight: 60 kg

DRUGS (15)
  1. ENBREL [Suspect]
     Indication: RHEUMATOID ARTHRITIS
     Dosage: 25 MG X 2/WEEK (SYRINGE-SOLUTION FOR INJ)
     Route: 058
     Dates: start: 20071116, end: 20090310
  2. BUCILLAMINE [Concomitant]
     Indication: RHEUMATOID ARTHRITIS
     Route: 048
     Dates: end: 20081205
  3. PREDNISOLONE [Concomitant]
     Indication: RHEUMATOID ARTHRITIS
     Dosage: 5 MG EVERY
     Route: 048
     Dates: end: 20090311
  4. PREDNISOLONE [Concomitant]
     Route: 048
     Dates: start: 20090312, end: 20090403
  5. PREDNISOLONE [Concomitant]
     Route: 048
     Dates: start: 20090404
  6. ASPARA-CA [Concomitant]
     Dosage: UNKNOWN
     Route: 048
  7. TACROLIMUS [Concomitant]
     Indication: RHEUMATOID ARTHRITIS
     Route: 048
     Dates: start: 20081121
  8. FOLIAMIN [Concomitant]
     Dosage: UNKNOWN
     Route: 048
  9. GASTER [Concomitant]
     Dosage: UNKNOWN
     Route: 048
  10. AMOBAN [Concomitant]
     Dosage: UNKNOWN
     Route: 048
  11. ACTONEL [Concomitant]
     Dosage: UNKNOWN
     Route: 048
  12. KLARICID [Concomitant]
     Dosage: UNKNOWN
     Route: 048
  13. METHOTREXATE [Concomitant]
     Indication: RHEUMATOID ARTHRITIS
     Route: 048
     Dates: start: 20030110, end: 20090310
  14. METHOTREXATE [Concomitant]
     Route: 048
     Dates: start: 20090321
  15. HYPEN [Concomitant]
     Indication: RHEUMATOID ARTHRITIS
     Dosage: UNKNOWN
     Route: 048

REACTIONS (1)
  - ANAPHYLACTIC SHOCK [None]
